FAERS Safety Report 4978829-0 (Version None)
Quarter: 2006Q2

REPORT INFORMATION
  Report Type: 
  Country: None (occurrence: None)
  Receive Date: 20060417
  Receipt Date: 20050906
  Transmission Date: 20061013
  Serious: Yes (Hospitalization)
  Sender: FDA-Public Use
  Company Number: 200108-1623

PATIENT
  Age: 35 Year
  Sex: Male

DRUGS (3)
  1. ACTIFED JOUR ET NUIT (DIPHENHYDRAMINE, PARACETAMOL, PHENYLPROPANOLAMIN [Suspect]
     Indication: CHRONIC SINUSITIS
     Dosage: 1 BOX PER MONTH, ORAL
     Route: 048
     Dates: start: 19980101
  2. PRAZEPAM [Concomitant]
  3. HOMEOPATIC PREPARATION [Concomitant]

REACTIONS (20)
  - AMNESIA [None]
  - ARTERIOGRAM CAROTID ABNORMAL [None]
  - BRAIN OEDEMA [None]
  - CEREBRAL HAEMATOMA [None]
  - CEREBROVASCULAR DISORDER [None]
  - CONVULSION [None]
  - ELECTROCARDIOGRAM PR PROLONGATION [None]
  - EPILEPSY [None]
  - HEADACHE [None]
  - HYPERAESTHESIA [None]
  - INFLAMMATION [None]
  - MENINGEAL DISORDER [None]
  - OPEN WOUND [None]
  - ORAL FUNGAL INFECTION [None]
  - PERSONALITY CHANGE [None]
  - POST-TRAUMATIC STRESS DISORDER [None]
  - STRESS [None]
  - TINNITUS [None]
  - TONGUE BITING [None]
  - ULTRASOUND SCAN ABNORMAL [None]
